FAERS Safety Report 4618886-4 (Version None)
Quarter: 2005Q1

REPORT INFORMATION
  Report Type: 
  Country: None (occurrence: None)
  Receive Date: 20050323
  Receipt Date: 20050221
  Transmission Date: 20050727
  Serious: Yes (Disabling, Other)
  Sender: FDA-Public Use
  Company Number: 2004118874

PATIENT
  Age: 73 Year
  Sex: Female

DRUGS (11)
  1. ACCUPRIL [Suspect]
     Indication: HYPERTENSION
     Dosage: 40 MG (40 MG, 1 IN 1 D), ORAL
     Route: 048
  2. NORVASC [Suspect]
     Indication: HYPERTENSION
     Dosage: 5 MG (5 MG, 1 IN 1 D), ORAL
     Route: 048
  3. ARTHROTEC (ARTHROTEC) (DICLOFENAC SODIUM, MISOPROSTOL) [Suspect]
     Indication: CONDITION AGGRAVATED
     Dosage: 75 MG (75 MG, 1 IN 1 D), ORAL
     Route: 048
     Dates: start: 20020101
  4. ARTHROTEC (ARTHROTEC) (DICLOFENAC SODIUM, MISOPROSTOL) [Suspect]
     Indication: OSTEOARTHRITIS
     Dosage: 75 MG (75 MG, 1 IN 1 D), ORAL
     Route: 048
     Dates: start: 20020101
  5. ATENOLOL [Suspect]
     Indication: HYPERTENSION
  6. CODEINE PHOSPHATE AND ACETAMINOPHEN [Concomitant]
  7. POTASSIUM ACETATE [Concomitant]
  8. CALCIUM (CALCIUM) [Concomitant]
  9. THYROID TAB [Concomitant]
  10. GALENIC /PARACETAMOL/CODEINE/ (CODEINE, PARACETAMOL) [Concomitant]
  11. NITROGLYCERIN [Concomitant]

REACTIONS (17)
  - ACTIVITIES OF DAILY LIVING IMPAIRED [None]
  - ASTHENIA [None]
  - BACK DISORDER [None]
  - BODY HEIGHT DECREASED [None]
  - CACHEXIA [None]
  - CARDIAC FIBRILLATION [None]
  - CONDITION AGGRAVATED [None]
  - DRUG INEFFECTIVE [None]
  - DYSPNOEA [None]
  - FATIGUE [None]
  - IMPAIRED DRIVING ABILITY [None]
  - JOINT DISLOCATION [None]
  - MUSCLE SPASMS [None]
  - MUSCULAR WEAKNESS [None]
  - MYALGIA [None]
  - OSTEOARTHRITIS [None]
  - PALPITATIONS [None]
